FAERS Safety Report 16746611 (Version 2)
Quarter: 2019Q3

REPORT INFORMATION
  Report Type: Spontaneous
  Country: FR (occurrence: FR)
  Receive Date: 20190827
  Receipt Date: 20190828
  Transmission Date: 20191005
  Serious: Yes (Other)
  Sender: FDA-Public Use
  Company Number: FR-IMPAX LABORATORIES, LLC-2019-IPXL-01713

PATIENT
  Age: 82 Year
  Sex: Male

DRUGS (2)
  1. ALBENZA [Suspect]
     Active Substance: ALBENDAZOLE
     Indication: HEPATIC ECHINOCOCCIASIS
     Dosage: UNK, ORAL SUSPENSION
     Route: 048
  2. ALBENZA [Suspect]
     Active Substance: ALBENDAZOLE
     Dosage: 400 MILLIGRAM TABLET
     Route: 048

REACTIONS (10)
  - Anaemia [Unknown]
  - Blood alkaline phosphatase increased [Unknown]
  - Gamma-glutamyltransferase increased [Unknown]
  - C-reactive protein increased [Unknown]
  - Blood creatinine increased [Unknown]
  - Renal impairment [Unknown]
  - Urticaria [Unknown]
  - Weight decreased [Unknown]
  - Product use in unapproved indication [Unknown]
  - Product prescribing error [Unknown]
